FAERS Safety Report 7381258-6 (Version None)
Quarter: 2011Q1

REPORT INFORMATION
  Report Type: 
  Country: None (occurrence: None)
  Receive Date: 20110321
  Receipt Date: 20110314
  Transmission Date: 20110831
  Serious: Yes (Other)
  Sender: FDA-Public Use
  Company Number: 2011SP011673

PATIENT
  Age: 37 Year
  Sex: Female
  Weight: 58.0604 kg

DRUGS (1)
  1. IMPLANON [Suspect]
     Indication: PRODUCT USED FOR UNKNOWN INDICATION

REACTIONS (10)
  - SINUSITIS [None]
  - MOOD SWINGS [None]
  - VAGINAL INFECTION [None]
  - VAGINAL HAEMORRHAGE [None]
  - CONDITION AGGRAVATED [None]
  - DEPRESSION [None]
  - HEADACHE [None]
  - WEIGHT INCREASED [None]
  - BIPOLAR DISORDER [None]
  - DIZZINESS [None]
